FAERS Safety Report 8807968 (Version 2)
Quarter: 2012Q4

REPORT INFORMATION
  Report Type: Report from Study
  Country: US (occurrence: US)
  Receive Date: 20120925
  Receipt Date: 20120928
  Transmission Date: 20130627
  Serious: Yes (Hospitalization)
  Sender: FDA-Public Use
  Company Number: US-JNJFOC-20120909871

PATIENT
  Age: 47 Year
  Sex: Male
  Weight: 110.22 kg

DRUGS (89)
  1. PALIPERIDONE [Suspect]
     Indication: SCHIZOPHRENIA
     Route: 048
     Dates: start: 20120906
  2. PALIPERIDONE [Suspect]
     Indication: SCHIZOPHRENIA
     Route: 048
     Dates: start: 20111021
  3. PALIPERIDONE PALMITATE [Suspect]
     Route: 030
  4. PALIPERIDONE PALMITATE [Suspect]
     Indication: SCHIZOPHRENIA
     Route: 030
  5. SEROQUEL [Concomitant]
     Indication: SCHIZOPHRENIA
     Route: 065
     Dates: start: 20110911, end: 20111020
  6. SEROQUEL [Concomitant]
     Indication: SCHIZOPHRENIA
     Route: 065
     Dates: start: 20120214, end: 20120217
  7. SEROQUEL [Concomitant]
     Indication: SCHIZOPHRENIA
     Route: 065
     Dates: start: 20120206
  8. SEROQUEL [Concomitant]
     Indication: SCHIZOPHRENIA
     Route: 065
     Dates: start: 20111021, end: 20111027
  9. SEROQUEL [Concomitant]
     Indication: PSYCHOTIC DISORDER
     Route: 065
     Dates: start: 20120214, end: 20120217
  10. SEROQUEL [Concomitant]
     Indication: PSYCHOTIC DISORDER
     Route: 065
     Dates: start: 20120206
  11. SEROQUEL [Concomitant]
     Indication: PSYCHOTIC DISORDER
     Route: 065
     Dates: start: 20111021, end: 20111027
  12. SEROQUEL [Concomitant]
     Indication: PSYCHOTIC DISORDER
     Route: 065
     Dates: start: 20110911, end: 20111020
  13. ATIVAN [Concomitant]
     Indication: CELLULITIS
     Route: 065
     Dates: start: 20120729, end: 20120828
  14. ATIVAN [Concomitant]
     Indication: CELLULITIS
     Route: 065
     Dates: start: 20120208
  15. ATIVAN [Concomitant]
     Indication: CELLULITIS
     Route: 065
     Dates: start: 20120612, end: 20120712
  16. ATIVAN [Concomitant]
     Indication: CELLULITIS
     Route: 065
     Dates: start: 20120729, end: 20120828
  17. ATIVAN [Concomitant]
     Indication: CELLULITIS
     Route: 065
     Dates: start: 20120208
  18. ATIVAN [Concomitant]
     Indication: CELLULITIS
     Route: 065
     Dates: start: 20120612, end: 20120712
  19. ATIVAN [Concomitant]
     Indication: LOWER LIMB FRACTURE
     Route: 065
     Dates: start: 20120612, end: 20120712
  20. ATIVAN [Concomitant]
     Indication: LOWER LIMB FRACTURE
     Route: 065
     Dates: start: 20120729, end: 20120828
  21. ATIVAN [Concomitant]
     Indication: LOWER LIMB FRACTURE
     Route: 065
     Dates: start: 20120208
  22. ATIVAN [Concomitant]
     Indication: ANXIETY
     Route: 065
     Dates: start: 20120208
  23. ATIVAN [Concomitant]
     Indication: ANXIETY
     Route: 065
     Dates: start: 20120612, end: 20120712
  24. ATIVAN [Concomitant]
     Indication: ANXIETY
     Route: 065
     Dates: start: 20120729, end: 20120828
  25. COGENTIN [Concomitant]
     Indication: LOWER LIMB FRACTURE
     Route: 065
     Dates: start: 20111123, end: 20120123
  26. COGENTIN [Concomitant]
     Indication: LOWER LIMB FRACTURE
     Route: 065
     Dates: start: 20111118, end: 20111122
  27. COGENTIN [Concomitant]
     Indication: LOWER LIMB FRACTURE
     Route: 065
     Dates: start: 20120217, end: 20120608
  28. COGENTIN [Concomitant]
     Indication: LOWER LIMB FRACTURE
     Route: 065
     Dates: start: 20120124, end: 20120213
  29. COGENTIN [Concomitant]
     Indication: LOWER LIMB FRACTURE
     Route: 065
     Dates: start: 20120610, end: 20120710
  30. COGENTIN [Concomitant]
     Indication: DYSARTHRIA
     Route: 065
     Dates: start: 20120217, end: 20120608
  31. COGENTIN [Concomitant]
     Indication: DYSARTHRIA
     Route: 065
     Dates: start: 20120124, end: 20120213
  32. COGENTIN [Concomitant]
     Indication: DYSARTHRIA
     Route: 065
     Dates: start: 20120610, end: 20120710
  33. COGENTIN [Concomitant]
     Indication: DYSARTHRIA
     Route: 065
     Dates: start: 20111118, end: 20111122
  34. COGENTIN [Concomitant]
     Indication: DYSARTHRIA
     Route: 065
     Dates: start: 20111123, end: 20120123
  35. TEMAZEPAM [Concomitant]
     Indication: LOWER LIMB FRACTURE
     Route: 065
     Dates: start: 20120610, end: 20120710
  36. TEMAZEPAM [Concomitant]
     Indication: LOWER LIMB FRACTURE
     Route: 065
     Dates: start: 20120124, end: 20120205
  37. TEMAZEPAM [Concomitant]
     Indication: LOWER LIMB FRACTURE
     Route: 065
     Dates: start: 20120217, end: 20120920
  38. TEMAZEPAM [Concomitant]
     Indication: INSOMNIA
     Route: 065
     Dates: start: 20120124, end: 20120205
  39. TEMAZEPAM [Concomitant]
     Indication: INSOMNIA
     Route: 065
     Dates: start: 20120217, end: 20120920
  40. TEMAZEPAM [Concomitant]
     Indication: INSOMNIA
     Route: 065
     Dates: start: 20120610, end: 20120710
  41. LAMICTAL [Concomitant]
     Indication: LOWER LIMB FRACTURE
     Route: 065
     Dates: start: 20120611, end: 20120711
  42. LAMICTAL [Concomitant]
     Indication: LOWER LIMB FRACTURE
     Route: 065
     Dates: start: 20120124, end: 20120315
  43. LAMICTAL [Concomitant]
     Indication: LOWER LIMB FRACTURE
     Route: 065
     Dates: start: 20120217, end: 20120511
  44. LAMICTAL [Concomitant]
     Indication: LOWER LIMB FRACTURE
     Route: 065
     Dates: start: 20120511, end: 20120608
  45. LAMICTAL [Concomitant]
     Indication: ANXIETY
     Route: 065
     Dates: start: 20120611, end: 20120711
  46. LAMICTAL [Concomitant]
     Indication: ANXIETY
     Route: 065
     Dates: start: 20120511, end: 20120608
  47. LAMICTAL [Concomitant]
     Indication: ANXIETY
     Route: 065
     Dates: start: 20120217, end: 20120511
  48. LAMICTAL [Concomitant]
     Indication: ANXIETY
     Route: 065
     Dates: start: 20120124, end: 20120315
  49. XANAX [Concomitant]
     Indication: LOWER LIMB FRACTURE
     Route: 065
     Dates: start: 20120120, end: 20120208
  50. XANAX [Concomitant]
     Indication: LOWER LIMB FRACTURE
     Route: 065
     Dates: start: 20120124, end: 20120208
  51. XANAX [Concomitant]
     Indication: LOWER LIMB FRACTURE
     Route: 065
     Dates: start: 20111207, end: 20120208
  52. XANAX [Concomitant]
     Indication: LOWER LIMB FRACTURE
     Route: 065
     Dates: start: 20120413
  53. XANAX [Concomitant]
     Indication: LOWER LIMB FRACTURE
     Route: 065
     Dates: start: 20120611, end: 20120711
  54. XANAX [Concomitant]
     Indication: LOWER LIMB FRACTURE
     Route: 065
     Dates: start: 20120217, end: 20120413
  55. XANAX [Concomitant]
     Indication: LOWER LIMB FRACTURE
     Route: 065
     Dates: start: 20120817, end: 20120920
  56. XANAX [Concomitant]
     Indication: IRRITABILITY
     Route: 065
     Dates: start: 20120120, end: 20120208
  57. XANAX [Concomitant]
     Indication: IRRITABILITY
     Route: 065
     Dates: start: 20120124, end: 20120208
  58. XANAX [Concomitant]
     Indication: IRRITABILITY
     Route: 065
     Dates: start: 20111207, end: 20120208
  59. XANAX [Concomitant]
     Indication: IRRITABILITY
     Route: 065
     Dates: start: 20120817, end: 20120920
  60. XANAX [Concomitant]
     Indication: IRRITABILITY
     Route: 065
     Dates: start: 20120611, end: 20120711
  61. XANAX [Concomitant]
     Indication: IRRITABILITY
     Route: 065
     Dates: start: 20120413
  62. XANAX [Concomitant]
     Indication: IRRITABILITY
     Route: 065
     Dates: start: 20120217, end: 20120413
  63. XANAX [Concomitant]
     Indication: ANXIETY
     Route: 065
     Dates: start: 20111207, end: 20120208
  64. XANAX [Concomitant]
     Indication: ANXIETY
     Route: 065
     Dates: start: 20120124, end: 20120208
  65. XANAX [Concomitant]
     Indication: ANXIETY
     Route: 065
     Dates: start: 20120217, end: 20120413
  66. XANAX [Concomitant]
     Indication: ANXIETY
     Route: 065
     Dates: start: 20120413
  67. XANAX [Concomitant]
     Indication: ANXIETY
     Route: 065
     Dates: start: 20120611, end: 20120711
  68. XANAX [Concomitant]
     Indication: ANXIETY
     Route: 065
     Dates: start: 20120817, end: 20120920
  69. XANAX [Concomitant]
     Indication: ANXIETY
     Route: 065
     Dates: start: 20120120, end: 20120208
  70. PERCOCET [Concomitant]
     Indication: WOUND INFECTION
     Route: 065
     Dates: start: 20120729
  71. PERCOCET [Concomitant]
     Indication: WOUND INFECTION
     Route: 065
     Dates: start: 20120615, end: 20120715
  72. PERCOCET [Concomitant]
     Indication: CELLULITIS
     Route: 065
     Dates: start: 20120615, end: 20120715
  73. PERCOCET [Concomitant]
     Indication: CELLULITIS
     Route: 065
     Dates: start: 20120729
  74. PERCOCET [Concomitant]
     Indication: LOWER LIMB FRACTURE
     Route: 065
     Dates: start: 20120729
  75. PERCOCET [Concomitant]
     Indication: LOWER LIMB FRACTURE
     Route: 065
     Dates: start: 20120615, end: 20120715
  76. VANCOMYCIN [Concomitant]
     Indication: CELLULITIS
     Route: 065
     Dates: start: 20120729, end: 20120828
  77. HALDOL [Concomitant]
     Indication: HALLUCINATION, AUDITORY
     Route: 065
     Dates: start: 20120110, end: 20120120
  78. HALDOL [Concomitant]
     Indication: HALLUCINATION, AUDITORY
     Route: 065
     Dates: start: 20120206, end: 20120213
  79. HALDOL [Concomitant]
     Indication: HALLUCINATION, AUDITORY
     Route: 065
     Dates: start: 20120729, end: 20120828
  80. HALDOL [Concomitant]
     Indication: PSYCHOTIC DISORDER
     Route: 065
     Dates: start: 20120206, end: 20120213
  81. HALDOL [Concomitant]
     Indication: PSYCHOTIC DISORDER
     Route: 065
     Dates: start: 20120729, end: 20120828
  82. HALDOL [Concomitant]
     Indication: PSYCHOTIC DISORDER
     Route: 065
     Dates: start: 20120110, end: 20120120
  83. HALDOL [Concomitant]
     Indication: CELLULITIS
     Route: 065
     Dates: start: 20120206, end: 20120213
  84. HALDOL [Concomitant]
     Indication: CELLULITIS
     Route: 065
     Dates: start: 20120110, end: 20120120
  85. HALDOL [Concomitant]
     Indication: CELLULITIS
     Route: 065
     Dates: start: 20120729, end: 20120828
  86. LEXAPRO [Concomitant]
     Indication: IRRITABILITY
     Route: 065
     Dates: start: 20120906
  87. LEXAPRO [Concomitant]
     Indication: IRRITABILITY
     Route: 065
     Dates: start: 20120210, end: 20120827
  88. LEXAPRO [Concomitant]
     Indication: DEPRESSION
     Route: 065
     Dates: start: 20120210, end: 20120827
  89. LEXAPRO [Concomitant]
     Indication: DEPRESSION
     Route: 065
     Dates: start: 20120906

REACTIONS (1)
  - Wound infection [Recovered/Resolved]
